FAERS Safety Report 7748303-7 (Version None)
Quarter: 2011Q3

REPORT INFORMATION
  Report Type: 
  Country: None (occurrence: None)
  Receive Date: 20110913
  Receipt Date: 20110906
  Transmission Date: 20111222
  Serious: Yes (Other)
  Sender: FDA-Public Use
  Company Number: PHEH2009US13608

PATIENT
  Sex: Male

DRUGS (10)
  1. CALCIUM CARBONATE [Concomitant]
  2. CASODEX [Concomitant]
  3. FLOMAX [Concomitant]
  4. XANAX [Concomitant]
  5. VICODIN [Concomitant]
  6. IBUPROFEN [Concomitant]
  7. ZOMETA [Suspect]
     Dosage: 4 MG, MONTHLY
     Dates: start: 20041201, end: 20080301
  8. NORCO [Concomitant]
  9. SOMA [Concomitant]
  10. ACTONEL [Concomitant]

REACTIONS (26)
  - HAEMATURIA [None]
  - SCIATICA [None]
  - RENAL CYST [None]
  - SINUSITIS [None]
  - RECTAL HAEMORRHAGE [None]
  - OSTEONECROSIS OF JAW [None]
  - ANXIETY [None]
  - OBSTRUCTIVE AIRWAYS DISORDER [None]
  - OSTEOARTHRITIS [None]
  - METASTASES TO BONE [None]
  - MUSCULOSKELETAL PAIN [None]
  - CAPILLARY DISORDER [None]
  - INTERVERTEBRAL DISC DEGENERATION [None]
  - INJURY [None]
  - ANHEDONIA [None]
  - PROSTATE CANCER [None]
  - NECK PAIN [None]
  - STRESS FRACTURE [None]
  - RENAL FAILURE [None]
  - OSTEOPOROSIS [None]
  - DYSPEPSIA [None]
  - DISABILITY [None]
  - PAIN [None]
  - RADICULOPATHY [None]
  - MITRAL VALVE PROLAPSE [None]
  - URINARY INCONTINENCE [None]
